FAERS Safety Report 6174858-2 (Version None)
Quarter: 2009Q2

REPORT INFORMATION
  Report Type: 
  Country: None (occurrence: None)
  Receive Date: 20090430
  Receipt Date: 20081203
  Transmission Date: 20091009
  Serious: No
  Sender: FDA-Public Use
  Company Number: US-ASTRAZENECA-2008UW26895

PATIENT
  Sex: Male
  Weight: 113.4 kg

DRUGS (6)
  1. NEXIUM [Suspect]
     Indication: COUGH
     Dosage: 40 MG, DAILY
     Route: 048
     Dates: start: 20080601
  2. NEXIUM [Suspect]
     Indication: OROPHARYNGEAL PAIN
     Dosage: 40 MG, DAILY
     Route: 048
     Dates: start: 20080601
  3. LIPITOR [Concomitant]
  4. LISINOPRIL AND HYDROCHLOROTHIAZIDE [Concomitant]
  5. ASPIRIN [Concomitant]
  6. VITAMINS [Concomitant]

REACTIONS (2)
  - DRUG INEFFECTIVE [None]
  - INAPPROPRIATE SCHEDULE OF DRUG ADMINISTRATION [None]
